FAERS Safety Report 6687267-4 (Version None)
Quarter: 2010Q2

REPORT INFORMATION
  Report Type: 
  Country: None (occurrence: None)
  Receive Date: 20100419
  Receipt Date: 20100406
  Transmission Date: 20101027
  Serious: Yes (Other)
  Sender: FDA-Public Use
  Company Number: US-WYE-H13073010

PATIENT
  Sex: Male
  Weight: 76.27 kg

DRUGS (1)
  1. PRISTIQ [Suspect]
     Indication: DEPRESSION
     Route: 048
     Dates: start: 20100111, end: 20100101

REACTIONS (11)
  - AGITATION [None]
  - BLOOD PRESSURE INCREASED [None]
  - CHILLS [None]
  - CONSTIPATION [None]
  - DYSURIA [None]
  - MOOD SWINGS [None]
  - MUSCULAR WEAKNESS [None]
  - PHOTOPHOBIA [None]
  - PUPILS UNEQUAL [None]
  - VISION BLURRED [None]
  - WEIGHT INCREASED [None]
